FAERS Safety Report 7163058-5 (Version None)
Quarter: 2010Q4

REPORT INFORMATION
  Report Type: 
  Country: None (occurrence: None)
  Receive Date: 20101215
  Receipt Date: 20100218
  Transmission Date: 20110411
  Serious: Yes (Other)
  Sender: FDA-Public Use
  Company Number: US-PFIZER INC-2010024662

PATIENT
  Sex: Female
  Weight: 63.502 kg

DRUGS (7)
  1. LYRICA [Suspect]
     Indication: BACK PAIN
     Dosage: 150 MG, 1X/DAY
     Dates: start: 20091018
  2. DEMEROL [Concomitant]
     Dosage: UNK
  3. VALIUM [Concomitant]
     Dosage: UNK
  4. ROXANOL [Concomitant]
     Dosage: UNK
  5. MS CONTIN [Concomitant]
     Dosage: 360 MG, UNK
  6. BACTRIM DS [Concomitant]
     Indication: GASTROINTESTINAL DISORDER
     Dosage: TWICE A DAY
  7. TYLENOL PM [Concomitant]
     Dosage: AS NEEDED

REACTIONS (14)
  - ACNE CYSTIC [None]
  - AMNESIA [None]
  - COMPLEX PARTIAL SEIZURES [None]
  - DRUG INEFFECTIVE [None]
  - DRY MOUTH [None]
  - FEELING DRUNK [None]
  - GASTROINTESTINAL DISORDER [None]
  - HYPERMETROPIA [None]
  - INCREASED APPETITE [None]
  - MENSTRUATION IRREGULAR [None]
  - OBSESSIVE-COMPULSIVE DISORDER [None]
  - POLLAKIURIA [None]
  - VISION BLURRED [None]
  - WEIGHT INCREASED [None]
